FAERS Safety Report 13760127 (Version 1)
Quarter: 2017Q3

REPORT INFORMATION
  Report Type: Spontaneous
  Country: US (occurrence: US)
  Receive Date: 20170717
  Receipt Date: 20170717
  Transmission Date: 20171127
  Serious: No
  Sender: FDA-Public Use
  Company Number: US-AMGEN-USASP2017073060

PATIENT
  Age: 36 Year
  Sex: Female

DRUGS (2)
  1. CORLANOR [Suspect]
     Active Substance: IVABRADINE HYDROCHLORIDE
     Indication: CARDIAC FAILURE
     Dosage: 7.5 MG, BID
     Route: 065
  2. CORLANOR [Suspect]
     Active Substance: IVABRADINE HYDROCHLORIDE
     Dosage: 12.5 MG, UNK  (5 MG IN THE MORNING AND 7.5 MG AT NIGHT)
     Route: 065

REACTIONS (3)
  - Heart rate decreased [Unknown]
  - Weight increased [Unknown]
  - Dizziness [Unknown]
